FAERS Safety Report 4363347-3 (Version None)
Quarter: 2004Q2

REPORT INFORMATION
  Report Type: 
  Country: None (occurrence: None)
  Receive Date: 20040518
  Receipt Date: 20040507
  Transmission Date: 20050107
  Serious: Yes (Death, Life-Threatening)
  Sender: FDA-Public Use
  Company Number: 2004209020IN

PATIENT
  Age: 55 Year
  Sex: Male
  Weight: 75 kg

DRUGS (3)
  1. FRAGMIN [Suspect]
     Indication: ANGINA UNSTABLE
     Dosage: 5000 IU, BID, SUBCUTANEOUS
     Route: 058
     Dates: start: 20040316, end: 20040318
  2. CEFAZOLIN [Concomitant]
  3. METRONIDAZOLE [Concomitant]

REACTIONS (2)
  - EXTRADURAL HAEMATOMA [None]
  - PARAPLEGIA [None]
